FAERS Safety Report 23825172 (Version 1)
Quarter: 2024Q2

REPORT INFORMATION
  Report Type: Spontaneous
  Country: CN (occurrence: CN)
  Receive Date: 20240507
  Receipt Date: 20240507
  Transmission Date: 20240715
  Serious: Yes (Hospitalization, Other)
  Sender: FDA-Public Use
  Company Number: CN-STERISCIENCE B.V.-2024-ST-000570

PATIENT
  Age: 4 Decade

DRUGS (8)
  1. MYCOPHENOLATE MOFETIL [Suspect]
     Active Substance: MYCOPHENOLATE MOFETIL
     Indication: Obstruction gastric
     Dosage: UNK
     Route: 065
  2. MYCOPHENOLATE MOFETIL [Suspect]
     Active Substance: MYCOPHENOLATE MOFETIL
     Indication: Impaired gastric emptying
  3. MYCOPHENOLATE MOFETIL [Suspect]
     Active Substance: MYCOPHENOLATE MOFETIL
     Indication: Duodenal ulcer
  4. METHYLPREDNISOLONE [Suspect]
     Active Substance: METHYLPREDNISOLONE
     Indication: Obstruction gastric
     Dosage: 1 MILLIGRAM/KILOGRAM
     Route: 065
  5. METHYLPREDNISOLONE [Suspect]
     Active Substance: METHYLPREDNISOLONE
     Indication: Duodenal ulcer
  6. METHYLPREDNISOLONE [Suspect]
     Active Substance: METHYLPREDNISOLONE
     Indication: Impaired gastric emptying
  7. SINTILIMAB [Concomitant]
     Active Substance: SINTILIMAB
     Indication: Diffuse large B-cell lymphoma stage III
     Dosage: RECEIVED AT 100?200MG
     Route: 065
     Dates: start: 202010, end: 2021
  8. TUCIDINOSTAT [Concomitant]
     Active Substance: TUCIDINOSTAT
     Indication: Diffuse large B-cell lymphoma stage III
     Dosage: RECEIVED EVERY 3 OR 4WEEKS
     Route: 065
     Dates: start: 202010

REACTIONS (2)
  - Therapy non-responder [Unknown]
  - Off label use [Unknown]
